FAERS Safety Report 20603661 (Version 1)
Quarter: 2022Q1

REPORT INFORMATION
  Report Type: Other
  Country: CA (occurrence: CA)
  Receive Date: 20220316
  Receipt Date: 20220316
  Transmission Date: 20220424
  Serious: Yes (Hospitalization)
  Sender: FDA-Public Use
  Company Number: CA-PFIZER INC-202200382254

PATIENT
  Age: 35 Year
  Sex: Female

DRUGS (55)
  1. HYDROMORPHONE HYDROCHLORIDE [Suspect]
     Active Substance: HYDROMORPHONE HYDROCHLORIDE
     Indication: Drug use disorder
     Dosage: UNK
     Route: 065
  2. HYDROMORPHONE HYDROCHLORIDE [Suspect]
     Active Substance: HYDROMORPHONE HYDROCHLORIDE
     Indication: Drug use disorder
     Dosage: UNK
     Route: 048
  3. METHADONE [Suspect]
     Active Substance: METHADONE HYDROCHLORIDE
     Indication: Drug use disorder
     Dosage: 143 MG, 1X/DAY
     Route: 048
  4. METHADONE [Suspect]
     Active Substance: METHADONE HYDROCHLORIDE
     Dosage: 170 MG, 2X/DAY
     Route: 048
  5. METHADONE [Suspect]
     Active Substance: METHADONE HYDROCHLORIDE
     Dosage: 170 MG, 1X/DAY
     Route: 048
  6. METHADONE [Suspect]
     Active Substance: METHADONE HYDROCHLORIDE
     Dosage: 170 MG, 1X/DAY
     Route: 048
  7. METHADONE [Suspect]
     Active Substance: METHADONE HYDROCHLORIDE
     Dosage: 170 MG, 1X/DAY
     Route: 048
  8. METHADONE [Suspect]
     Active Substance: METHADONE HYDROCHLORIDE
     Dosage: 160 MG, 1X/DAY
     Route: 048
  9. METHADONE [Suspect]
     Active Substance: METHADONE HYDROCHLORIDE
     Dosage: 140 MG, 2X/DAY
     Route: 048
  10. METHADONE [Suspect]
     Active Substance: METHADONE HYDROCHLORIDE
     Dosage: 30 MG
     Route: 048
  11. METHADONE [Suspect]
     Active Substance: METHADONE HYDROCHLORIDE
     Dosage: 142 MG, 1X/DAY
     Route: 048
  12. METHADONE [Suspect]
     Active Substance: METHADONE HYDROCHLORIDE
     Dosage: 170 MG, 1X/DAY
     Route: 048
  13. METHADONE [Suspect]
     Active Substance: METHADONE HYDROCHLORIDE
     Dosage: 142 MG, 1X/DAY
     Route: 048
  14. METHADONE [Suspect]
     Active Substance: METHADONE HYDROCHLORIDE
     Dosage: 170 MG, 2X/DAY
     Route: 048
  15. METHADONE [Suspect]
     Active Substance: METHADONE HYDROCHLORIDE
     Dosage: 170 MG, 2X/DAY
     Route: 048
  16. METHADONE [Suspect]
     Active Substance: METHADONE HYDROCHLORIDE
     Dosage: 170 MG, 2X/DAY
     Route: 048
  17. METHADONE [Suspect]
     Active Substance: METHADONE HYDROCHLORIDE
     Dosage: 142 MG, 1X/DAY
     Route: 048
  18. METHADONE [Suspect]
     Active Substance: METHADONE HYDROCHLORIDE
     Dosage: 170 MG, 2X/DAY
     Route: 048
  19. METHADONE [Suspect]
     Active Substance: METHADONE HYDROCHLORIDE
     Dosage: 160 MG, 1X/DAY
     Route: 048
  20. METHADONE [Suspect]
     Active Substance: METHADONE HYDROCHLORIDE
     Dosage: 170 MG, 2X/DAY
     Route: 065
  21. METHADONE [Suspect]
     Active Substance: METHADONE HYDROCHLORIDE
     Dosage: UNK UNK, EVERY 5 DAYS
     Route: 065
  22. METHADONE [Suspect]
     Active Substance: METHADONE HYDROCHLORIDE
     Dosage: UNK UNK, 2X/DAY
     Route: 065
  23. METHADONE [Suspect]
     Active Substance: METHADONE HYDROCHLORIDE
     Dosage: 140 MG, 2X/DAY
     Route: 065
  24. METHADONE [Suspect]
     Active Substance: METHADONE HYDROCHLORIDE
     Dosage: 30 MG
     Route: 065
  25. METHADONE [Suspect]
     Active Substance: METHADONE HYDROCHLORIDE
     Dosage: UNK
     Route: 065
  26. METHADONE [Suspect]
     Active Substance: METHADONE HYDROCHLORIDE
     Dosage: UNK, 2X/DAY
     Route: 065
  27. MORPHINE [Suspect]
     Active Substance: MORPHINE
     Indication: Procedural pain
     Dosage: 1490 MG, 1X/DAY
     Route: 048
  28. MORPHINE [Suspect]
     Active Substance: MORPHINE
     Indication: Drug use disorder
     Dosage: 600 MG, 2X/DAY
     Route: 048
  29. MORPHINE [Suspect]
     Active Substance: MORPHINE
     Dosage: 640 MG, 1X/DAY
     Route: 048
  30. MORPHINE [Suspect]
     Active Substance: MORPHINE
     Dosage: 1340 MG, 1X/DAY
     Route: 048
  31. MORPHINE [Suspect]
     Active Substance: MORPHINE
     Dosage: 700 MG, 1X/DAY
  32. MORPHINE [Suspect]
     Active Substance: MORPHINE
     Dosage: 150 MG, EVERY 4 HRS
     Route: 048
  33. MORPHINE [Suspect]
     Active Substance: MORPHINE
     Dosage: 800 MG, 1X/DAY
     Route: 048
  34. MORPHINE [Suspect]
     Active Substance: MORPHINE
     Dosage: 1020 MG, 1X/DAY
     Route: 048
  35. MORPHINE [Suspect]
     Active Substance: MORPHINE
     Dosage: 600 MG, 2X/DAY
     Route: 048
  36. MORPHINE [Suspect]
     Active Substance: MORPHINE
     Dosage: 150 MG EVERY 6 HOURS
     Route: 048
  37. MORPHINE [Suspect]
     Active Substance: MORPHINE
     Dosage: 600 MG, 2X/DAY
     Route: 048
  38. MORPHINE [Suspect]
     Active Substance: MORPHINE
     Dosage: 1290 MG, 1X/DAY
     Route: 048
  39. MORPHINE [Suspect]
     Active Substance: MORPHINE
     Dosage: 680 MG
     Route: 048
  40. MORPHINE [Suspect]
     Active Substance: MORPHINE
     Dosage: 800 MG, 1X/DAY
     Route: 048
  41. MORPHINE [Suspect]
     Active Substance: MORPHINE
     Dosage: 1440 MG, 1X/DAY
     Route: 048
  42. MORPHINE [Suspect]
     Active Substance: MORPHINE
     Dosage: 150 MG EVERY 6 HOURS
     Route: 048
  43. MORPHINE [Suspect]
     Active Substance: MORPHINE
     Dosage: 920 MG, 1X/DAY
     Route: 048
  44. MORPHINE [Suspect]
     Active Substance: MORPHINE
     Dosage: 150 MG, EVERY 4 HRS
     Route: 048
  45. MORPHINE [Suspect]
     Active Substance: MORPHINE
     Dosage: 680 MG, 1X/DAY
     Route: 048
  46. MORPHINE [Suspect]
     Active Substance: MORPHINE
     Dosage: 700 MG, 1X/DAY
     Route: 048
  47. MORPHINE [Suspect]
     Active Substance: MORPHINE
     Dosage: 600 MG, 1X/DAY
     Route: 048
  48. MORPHINE [Suspect]
     Active Substance: MORPHINE
     Dosage: 600 MG, 1X/DAY
     Route: 048
  49. MORPHINE [Suspect]
     Active Substance: MORPHINE
     Dosage: UNK EVERY 5 DAYS
     Route: 048
  50. MORPHINE [Suspect]
     Active Substance: MORPHINE
     Dosage: UNK EVERY 5 DAYS
     Route: 048
  51. MORPHINE [Suspect]
     Active Substance: MORPHINE
     Dosage: UNK
     Route: 048
  52. MORPHINE [Suspect]
     Active Substance: MORPHINE
     Dosage: 150 MG, 4X/DAY
     Route: 065
  53. MORPHINE [Suspect]
     Active Substance: MORPHINE
     Dosage: 600 MG, 2X/DAY
     Route: 048
  54. CARFENTANIL [Suspect]
     Active Substance: CARFENTANIL
     Indication: Pain
     Dosage: UNK
     Route: 045
  55. OXYCODONE [Suspect]
     Active Substance: OXYCODONE
     Indication: Drug use disorder
     Dosage: UNK
     Route: 065

REACTIONS (13)
  - Constipation [Recovered/Resolved]
  - Drug dependence [Recovered/Resolved]
  - Drug tolerance increased [Recovered/Resolved]
  - Drug withdrawal syndrome [Recovered/Resolved]
  - Hyperhidrosis [Recovered/Resolved]
  - Intentional product misuse [Recovered/Resolved]
  - Live birth [Recovered/Resolved]
  - Maternal exposure during pregnancy [Recovered/Resolved]
  - Overdose [Recovered/Resolved]
  - Rhinorrhoea [Recovered/Resolved]
  - Tachycardia [Recovered/Resolved]
  - Off label use [Unknown]
  - Drug ineffective for unapproved indication [Not Recovered/Not Resolved]
